FAERS Safety Report 7651357-X (Version None)
Quarter: 2011Q3

REPORT INFORMATION
  Report Type: 
  Country: None (occurrence: None)
  Receive Date: 20110802
  Receipt Date: 20110721
  Transmission Date: 20111222
  Serious: Yes (Other)
  Sender: FDA-Public Use
  Company Number: PHEH2010US02799

PATIENT
  Sex: Female

DRUGS (12)
  1. ACTOS [Concomitant]
  2. REMERON [Concomitant]
  3. AREDIA [Suspect]
     Indication: BREAST CANCER METASTATIC
  4. CARISOPRODOL [Concomitant]
  5. LIPITOR [Concomitant]
  6. ASPIRIN [Concomitant]
  7. PROTONIX [Concomitant]
  8. CARDIZEM [Concomitant]
  9. FLUDROCORTISONE ACETATE [Concomitant]
  10. PULMICORT [Concomitant]
  11. FERROUS SULFATE TAB [Concomitant]
  12. DURAGESIC-100 [Concomitant]

REACTIONS (13)
  - DIABETES MELLITUS [None]
  - INFECTION [None]
  - INJURY [None]
  - CARDIAC DISORDER [None]
  - SINUSITIS [None]
  - OSTEONECROSIS OF JAW [None]
  - HEADACHE [None]
  - ASTHMA [None]
  - DEFORMITY [None]
  - PAIN [None]
  - METASTASES TO BONE [None]
  - BACK PAIN [None]
  - MUSCULOSKELETAL CHEST PAIN [None]
